FAERS Safety Report 8062412-7 (Version None)
Quarter: 2012Q1

REPORT INFORMATION
  Report Type: 
  Country: None (occurrence: None)
  Receive Date: 20120123
  Receipt Date: 20120110
  Transmission Date: 20120608
  Serious: Yes (Other)
  Sender: FDA-Public Use
  Company Number: AT-ACTELION-A-CH2012-59556

PATIENT
  Sex: Female
  Weight: 85 kg

DRUGS (5)
  1. ATORVASTATIN CALCIUM [Concomitant]
  2. ILOMEDIN [Concomitant]
  3. TRACLEER [Suspect]
     Indication: SKIN ULCER
     Dosage: 62.5 MG, BID
     Route: 048
     Dates: start: 20101106, end: 20101203
  4. SERACTIL [Concomitant]
  5. PREDNISOLONE [Concomitant]

REACTIONS (1)
  - JOINT SWELLING [None]
